FAERS Safety Report 15122185 (Version 1)
Quarter: 2018Q3

REPORT INFORMATION
  Report Type: Spontaneous
  Country: US (occurrence: US)
  Receive Date: 20180709
  Receipt Date: 20180709
  Transmission Date: 20181010
  Serious: Yes (Other)
  Sender: FDA-Public Use
  Company Number: US-OTSUKA-2018_011540

PATIENT
  Sex: Female

DRUGS (3)
  1. ABILIFY [Suspect]
     Active Substance: ARIPIPRAZOLE
     Indication: BIPOLAR DISORDER
     Dosage: 10 MG, QD
     Route: 065
     Dates: start: 200704
  2. ABILIFY [Suspect]
     Active Substance: ARIPIPRAZOLE
     Indication: MAJOR DEPRESSION
     Dosage: 20 MG, QD
     Route: 065
     Dates: end: 201612
  3. ABILIFY [Suspect]
     Active Substance: ARIPIPRAZOLE
     Indication: ANXIETY

REACTIONS (17)
  - Shoplifting [Unknown]
  - Gambling disorder [Recovered/Resolved]
  - Loss of employment [Unknown]
  - Bankruptcy [Unknown]
  - Personal relationship issue [Unknown]
  - Theft [Unknown]
  - Fear [Unknown]
  - Product use in unapproved indication [Unknown]
  - Metabolic surgery [Unknown]
  - Eating disorder [Recovered/Resolved]
  - Social problem [Unknown]
  - Compulsive shopping [Recovered/Resolved]
  - Pain [Unknown]
  - Emotional distress [Unknown]
  - Anxiety [Unknown]
  - Compulsive hoarding [Recovered/Resolved]
  - Economic problem [Unknown]

NARRATIVE: CASE EVENT DATE: 200704
